FAERS Safety Report 17035679 (Version 1)
Quarter: 2019Q4

REPORT INFORMATION
  Report Type: Spontaneous
  Country: US (occurrence: US)
  Receive Date: 20191010
  Receipt Date: 20191010
  Transmission Date: 20200122
  Serious: Yes (Hospitalization)
  Sender: FDA-Public Use
  Company Number: None

PATIENT
  Age: 67 Year
  Sex: Female
  Weight: 77.1 kg

DRUGS (4)
  1. OXALIPLATIN 85MG/M2 [Suspect]
     Active Substance: OXALIPLATIN
     Indication: PANCREATIC CARCINOMA METASTATIC
     Dosage: ?          OTHER DOSE:156.5MG;OTHER FREQUENCY:EVERY 2 WEEKS;?
     Route: 042
     Dates: start: 20190920
  2. FLUOROURACIL 2400MG/M2 [Suspect]
     Active Substance: FLUOROURACIL
     Indication: PANCREATIC CARCINOMA METASTATIC
     Route: 042
     Dates: start: 20190920
  3. LEUCOVORIN 400MG/M2 [Suspect]
     Active Substance: LEUCOVORIN CALCIUM
     Indication: PANCREATIC CARCINOMA METASTATIC
     Route: 042
     Dates: start: 20190920
  4. ABRAXANE [Suspect]
     Active Substance: PACLITAXEL
     Indication: ADENOCARCINOMA PANCREAS
     Dosage: ?          OTHER FREQUENCY:EVERY 2 WKS;?
     Route: 042
     Dates: start: 20190920

REACTIONS (2)
  - Cerebellar infarction [None]
  - Cerebrovascular accident [None]

NARRATIVE: CASE EVENT DATE: 20191005
